FAERS Safety Report 6630543-1 (Version None)
Quarter: 2010Q1

REPORT INFORMATION
  Report Type: 
  Country: None (occurrence: None)
  Receive Date: 20100311
  Receipt Date: 20091026
  Transmission Date: 20100710
  Serious: No
  Sender: FDA-Public Use
  Company Number: US-BIOGENIDEC-2006BI017530

PATIENT
  Sex: Female
  Weight: 68 kg

DRUGS (1)
  1. AVONEX [Suspect]
     Indication: MULTIPLE SCLEROSIS
     Route: 030
     Dates: start: 20060801, end: 20061110

REACTIONS (3)
  - ADVERSE EVENT [None]
  - DEPRESSION [None]
  - INFLUENZA LIKE ILLNESS [None]
